FAERS Safety Report 25494256 (Version 1)
Quarter: 2025Q2

REPORT INFORMATION
  Report Type: Spontaneous
  Country: JP (occurrence: JP)
  Receive Date: 20250630
  Receipt Date: 20250630
  Transmission Date: 20250716
  Serious: Yes (Hospitalization)
  Sender: OTSUKA
  Company Number: JP-MMM-Otsuka-B0JFT78S

PATIENT
  Age: 85 Year
  Sex: Male

DRUGS (2)
  1. REXULTI [Suspect]
     Active Substance: BREXPIPRAZOLE
     Indication: Dementia Alzheimer^s type
     Dosage: 1 MG/DAY
     Route: 048
     Dates: start: 20250521, end: 20250617
  2. REXULTI [Suspect]
     Active Substance: BREXPIPRAZOLE
     Route: 048
     Dates: start: 20250423, end: 20250520

REACTIONS (2)
  - Blood creatine phosphokinase abnormal [Unknown]
  - Asthenia [Unknown]

NARRATIVE: CASE EVENT DATE: 20250601
